FAERS Safety Report 8271963-1 (Version None)
Quarter: 2012Q2

REPORT INFORMATION
  Report Type: 
  Country: None (occurrence: None)
  Receive Date: 20120410
  Receipt Date: 20120328
  Transmission Date: 20120825
  Serious: Yes (Hospitalization)
  Sender: FDA-Public Use
  Company Number: CN-MYLANLABS-2012S1006841

PATIENT
  Age: 35 Year
  Sex: Female

DRUGS (1)
  1. FLUOROURACIL [Suspect]
     Indication: CHORIOCARCINOMA
     Dosage: 24 MG/KG X DAY [SIC] ON DAYS 1-8 OF EVERY 3-WEEK CYCLE
     Route: 042

REACTIONS (1)
  - UTERINE PERFORATION [None]
